FAERS Safety Report 23454855 (Version 1)
Quarter: 2024Q1

REPORT INFORMATION
  Report Type: Report from Study
  Country: US (occurrence: US)
  Receive Date: 20240130
  Receipt Date: 20240130
  Transmission Date: 20240410
  Serious: Yes (Other)
  Sender: FDA-Public Use
  Company Number: US-ABBVIE-5604764

PATIENT
  Age: 43 Year
  Sex: Female

DRUGS (2)
  1. RINVOQ [Suspect]
     Active Substance: UPADACITINIB
     Indication: Rheumatoid arthritis
     Dosage: FORM STRENGTH: 15 MILLIGRAM
     Route: 048
     Dates: start: 20230927
  2. RINVOQ [Suspect]
     Active Substance: UPADACITINIB
     Indication: Rheumatoid arthritis
     Dosage: FORM STRENGTH: 15 MILLIGRAM
     Route: 048
     Dates: start: 202401

REACTIONS (9)
  - Breast mass [Unknown]
  - Ear discomfort [Unknown]
  - Ear infection [Unknown]
  - COVID-19 [Unknown]
  - Rheumatoid arthritis [Not Recovered/Not Resolved]
  - Hypoacusis [Unknown]
  - Viral infection [Unknown]
  - Ear pain [Unknown]
  - Axillary mass [Unknown]

NARRATIVE: CASE EVENT DATE: 20231101
